FAERS Safety Report 6523068-5 (Version None)
Quarter: 2009Q4

REPORT INFORMATION
  Report Type: 
  Country: None (occurrence: None)
  Receive Date: 20091222
  Receipt Date: 20090122
  Transmission Date: 20100525
  Serious: Yes (Other)
  Sender: FDA-Public Use
  Company Number: DSA_33115_2009

PATIENT
  Sex: Male

DRUGS (2)
  1. LORAZEPAM [Suspect]
     Indication: ANXIETY
     Dosage: 1 MG QD
  2. TRAVATAN [Concomitant]

REACTIONS (1)
  - INTRAOCULAR PRESSURE INCREASED [None]
